FAERS Safety Report 8898062 (Version 1)
Quarter: 2012Q4

REPORT INFORMATION
  Report Type: 
  Country: US (occurrence: US)
  Receive Date: 20121108
  Receipt Date: 20121108
  Transmission Date: 20130627
  Serious: No
  Sender: FDA-Public Use
  Company Number: US-AMGEN-USASP2012033399

PATIENT
  Sex: Female

DRUGS (6)
  1. ENBREL [Suspect]
     Indication: PRODUCT USED FOR UNKNOWN INDICATION
     Dosage: 50 mg, 2 times/wk
     Route: 058
  2. MAGNESIUM SULFATE [Concomitant]
  3. SYNTHROID [Concomitant]
     Dosage: 150 mug, UNK
  4. LATANOPROST [Concomitant]
     Dosage: .005 %, UNK
  5. POTASSIUM [Concomitant]
     Dosage: 99 mg, UNK
  6. BILBERRY                           /01397601/ [Concomitant]
     Dosage: 150 mg, UNK

REACTIONS (1)
  - Nasopharyngitis [Recovering/Resolving]
